FAERS Safety Report 8949756 (Version 2)
Quarter: 2015Q1

REPORT INFORMATION
  Report Type: Report from Study
  Country: ES (occurrence: ES)
  Receive Date: 20121206
  Receipt Date: 20150213
  Transmission Date: 20150721
  Serious: Yes (Life-Threatening)
  Sender: FDA-Public Use
  Company Number: ES-ROCHE-1161885

PATIENT
  Age: 58 Year
  Sex: Male
  Weight: 74 kg

DRUGS (4)
  1. BEVACIZUMAB [Suspect]
     Active Substance: BEVACIZUMAB
     Indication: COLON CANCER
     Dosage: DATE OF LAST DOSE PRIOR TO SAE: 06/NOV/2012
     Route: 042
     Dates: start: 20120924
  2. AMLODIPINE [Concomitant]
     Active Substance: AMLODIPINE BESYLATE
     Indication: HYPERTENSION
     Route: 065
     Dates: start: 20121112
  3. CAPECITABINE. [Suspect]
     Active Substance: CAPECITABINE
     Indication: COLON CANCER
     Dosage: DATE OF LAST DOSE PRIOR TO SAE: 09/NOV/2012
     Route: 048
     Dates: start: 20120924, end: 20121109
  4. OXALIPLATIN. [Suspect]
     Active Substance: OXALIPLATIN
     Indication: COLON CANCER
     Dosage: DATE OF LAST DOSE PRIOR TO SAE: 06/NOV/2012
     Route: 042
     Dates: start: 20120924, end: 20121106

REACTIONS (1)
  - Acute kidney injury [Recovered/Resolved]

NARRATIVE: CASE EVENT DATE: 20121112
